FAERS Safety Report 5005961-8 (Version None)
Quarter: 2006Q2

REPORT INFORMATION
  Report Type: 
  Country: None (occurrence: None)
  Receive Date: 20060320
  Receipt Date: 20050131
  Transmission Date: 20061013
  Serious: Yes (Hospitalization, Other)
  Sender: FDA-Public Use
  Company Number: 2005-01-2160

PATIENT

DRUGS (2)
  1. PEG-INTRON [Suspect]
  2. REBETOL [Suspect]
     Dosage: ORAL
     Route: 048

REACTIONS (1)
  - RHABDOMYOLYSIS [None]
